FAERS Safety Report 10188247 (Version 1)
Quarter: 2014Q2

REPORT INFORMATION
  Report Type: Spontaneous
  Country: US (occurrence: None)
  Receive Date: 20140521
  Receipt Date: 20140521
  Transmission Date: 20141212
  Serious: Yes (Other)
  Sender: FDA-Public Use
  Company Number: None

PATIENT
  Age: 50 Year
  Sex: Female
  Weight: 87.09 kg

DRUGS (2)
  1. LEVOTHYROXINE [Suspect]
     Route: 048
  2. SYNTHROID [Concomitant]

REACTIONS (2)
  - Product substitution issue [None]
  - Thyroid function test abnormal [None]
